FAERS Safety Report 19607147 (Version 3)
Quarter: 2021Q3

REPORT INFORMATION
  Report Type: Report from Study
  Country: FR (occurrence: FR)
  Receive Date: 20210726
  Receipt Date: 20210917
  Transmission Date: 20211014
  Serious: Yes (Hospitalization)
  Sender: FDA-Public Use
  Company Number: FR-CELLTRION INC.-2021FR009726

PATIENT

DRUGS (3)
  1. INFLIXIMAB [Suspect]
     Active Substance: INFLIXIMAB
     Indication: PRODUCT USED FOR UNKNOWN INDICATION
     Dosage: 250 MILLIGRAM
     Route: 065
     Dates: start: 20210226
  2. INFLIXIMAB [Suspect]
     Active Substance: INFLIXIMAB
     Dosage: CURE NUMBER 2
     Route: 065
     Dates: start: 20210316
  3. NIVOLUMAB [Suspect]
     Active Substance: NIVOLUMAB
     Indication: SQUAMOUS CELL CARCINOMA OF HEAD AND NECK
     Dosage: 480 MILLIGRAM, Q4WK
     Route: 065
     Dates: start: 20200703, end: 20201120

REACTIONS (2)
  - Intentional product use issue [Unknown]
  - Diarrhoea [Recovered/Resolved]

NARRATIVE: CASE EVENT DATE: 20201213
